FAERS Safety Report 5586069-X (Version None)
Quarter: 2008Q1

REPORT INFORMATION
  Report Type: 
  Country: None (occurrence: None)
  Receive Date: 20080107
  Receipt Date: 20071220
  Transmission Date: 20080703
  Serious: No
  Sender: FDA-Public Use
  Company Number: TPA2007A02542

PATIENT
  Sex: Female

DRUGS (3)
  1. ACTOS [Suspect]
     Dosage: PER ORAL
     Route: 048
  2. LASIX [Concomitant]
  3. ATENOLOL [Concomitant]

REACTIONS (2)
  - FUNGAL INFECTION [None]
  - NERVOUSNESS [None]
